FAERS Safety Report 8370680-7 (Version None)
Quarter: 2012Q2

REPORT INFORMATION
  Report Type: 
  Country: None (occurrence: None)
  Receive Date: 20120518
  Receipt Date: 20120514
  Transmission Date: 20120825
  Serious: Yes (Life-Threatening)
  Sender: FDA-Public Use
  Company Number: AT-PFIZER INC-2012117505

PATIENT
  Age: 57 Year
  Sex: Female

DRUGS (13)
  1. AMITRIPTYLINE HCL [Suspect]
     Dosage: 100 MG, UNK
     Dates: end: 20120417
  2. BISOPROLOL FUMARATE [Concomitant]
     Dosage: 5 MG, UNK
  3. SERTRALINE HYDROCHLORIDE [Concomitant]
     Dosage: 100 MG, UNK
     Dates: start: 20120414, end: 20120507
  4. PANTOPRAZOLE SODIUM [Concomitant]
     Dosage: 40 MG, UNK
  5. NEURONTIN [Suspect]
     Indication: OFF LABEL USE
  6. HYDAL [Concomitant]
     Dosage: 16 MG, UNK
     Dates: start: 20100101
  7. HALCION [Concomitant]
     Dosage: 0.25 MG, UNK
  8. NEURONTIN [Suspect]
     Indication: DEPRESSION
     Dosage: 1200 MG, 1X/DAY
     Dates: start: 20110101
  9. SERTRALINE HYDROCHLORIDE [Concomitant]
     Dosage: 50 MG, UNK
     Dates: start: 20120508
  10. MIRTAZAPINE [Concomitant]
     Dosage: 30 MG, UNK
     Dates: start: 20120419
  11. MARCOUMAR [Concomitant]
     Dosage: 1 DF, UNK
     Dates: start: 20120507
  12. EUTHYROX [Concomitant]
     Dosage: 150 UG, UNK
  13. LOVENOX [Concomitant]
     Dosage: 140 MG, UNK
     Dates: start: 20120418, end: 20120506

REACTIONS (2)
  - PULMONARY ARTERY THROMBOSIS [None]
  - DEEP VEIN THROMBOSIS [None]
